FAERS Safety Report 14941466 (Version 2)
Quarter: 2018Q2

REPORT INFORMATION
  Report Type: Report from Study
  Country: CA (occurrence: CA)
  Receive Date: 20180526
  Receipt Date: 20180612
  Transmission Date: 20180711
  Serious: Yes (Hospitalization, Other)
  Sender: FDA-Public Use
  Company Number: CA-AMGEN-CANSL2018070138

PATIENT
  Age: 85 Year
  Sex: Female

DRUGS (12)
  1. MYRBETRIQ [Concomitant]
     Active Substance: MIRABEGRON
  2. PROLIA [Suspect]
     Active Substance: DENOSUMAB
     Indication: OSTEOPOROSIS
     Dosage: 60 MG/ML, Q6MO
     Route: 058
     Dates: start: 20171110
  3. PROLIA [Suspect]
     Active Substance: DENOSUMAB
     Indication: BONE DENSITY ABNORMAL
  4. NOVOGESIC [Concomitant]
     Indication: ARTHRITIS
  5. APO-FERROUS SULFATE [Concomitant]
  6. LORAZEPAM. [Concomitant]
     Active Substance: LORAZEPAM
  7. L THYROXINE [Concomitant]
     Active Substance: LEVOTHYROXINE SODIUM
  8. TYLENOL [Concomitant]
     Active Substance: ACETAMINOPHEN
     Indication: ARTHRITIS
  9. ASA [Concomitant]
     Active Substance: ASPIRIN
     Dosage: 81 MG, UNK
  10. ATORVASTATIN [Concomitant]
     Active Substance: ATORVASTATIN
     Indication: BLOOD CHOLESTEROL ABNORMAL
  11. PANTOPRAZOLE [Concomitant]
     Active Substance: PANTOPRAZOLE
  12. APO PERINDOPRIL [Concomitant]

REACTIONS (1)
  - Cerebrovascular accident [Not Recovered/Not Resolved]

NARRATIVE: CASE EVENT DATE: 20180409
